FAERS Safety Report 7490914-0 (Version None)
Quarter: 2011Q2

REPORT INFORMATION
  Report Type: 
  Country: None (occurrence: None)
  Receive Date: 20110519
  Receipt Date: 20110505
  Transmission Date: 20111010
  Serious: Yes (Other)
  Sender: FDA-Public Use
  Company Number: CA-JNJFOC-20110503610

PATIENT
  Sex: Male
  Weight: 61.3 kg

DRUGS (2)
  1. REMICADE [Suspect]
     Indication: CROHN'S DISEASE
     Route: 042
     Dates: start: 20081201
  2. WARFARIN SODIUM [Concomitant]

REACTIONS (6)
  - DRUG INEFFECTIVE [None]
  - TINNITUS [None]
  - HYPOACUSIS [None]
  - INFLUENZA [None]
  - EAR INFECTION [None]
  - NASOPHARYNGITIS [None]
